FAERS Safety Report 5602540-6 (Version None)
Quarter: 2008Q1

REPORT INFORMATION
  Report Type: 
  Country: None (occurrence: None)
  Receive Date: 20080125
  Receipt Date: 20080124
  Transmission Date: 20080703
  Serious: Yes (Death, Life-Threatening)
  Sender: FDA-Public Use
  Company Number: B0504949A

PATIENT
  Age: 1 Month
  Sex: Female
  Weight: 3.3 kg

DRUGS (7)
  1. FLOLAN [Suspect]
     Indication: HEART DISEASE CONGENITAL
     Route: 042
     Dates: start: 20070123, end: 20070201
  2. FUROSEMIDE [Concomitant]
  3. DOBUTAMINE HCL [Concomitant]
     Route: 042
  4. MILRINONE [Concomitant]
  5. FENTANYL [Concomitant]
  6. MIDAZOLAM HCL [Concomitant]
  7. VECURONIUM BROMIDE [Concomitant]

REACTIONS (2)
  - PNEUMONIA [None]
  - PULMONARY OEDEMA [None]
